FAERS Safety Report 9744614 (Version 3)
Quarter: 2013Q4

REPORT INFORMATION
  Report Type: Spontaneous
  Country: AU (occurrence: AU)
  Receive Date: 20131210
  Receipt Date: 20131231
  Transmission Date: 20140711
  Serious: Yes (Other)
  Sender: FDA-Public Use
  Company Number: AU-ASTRAZENECA-2012SE17409

PATIENT
  Age: 69 Year
  Sex: Female

DRUGS (2)
  1. ARIMIDEX [Suspect]
     Route: 048
     Dates: start: 20090601, end: 2012
  2. ARIMIDEX [Suspect]
     Route: 048
     Dates: start: 200909, end: 2012

REACTIONS (2)
  - Metastases to stomach [Not Recovered/Not Resolved]
  - Alopecia [Not Recovered/Not Resolved]
